FAERS Safety Report 14126677 (Version 1)
Quarter: 2017Q4

REPORT INFORMATION
  Report Type: Spontaneous
  Country: US (occurrence: US)
  Receive Date: 20171025
  Receipt Date: 20171025
  Transmission Date: 20180321
  Serious: Yes (Hospitalization)
  Sender: FDA-Public Use
  Company Number: US-IMPAX LABORATORIES, INC-2017-IPXL-03002

PATIENT
  Age: 80 Year
  Sex: Male
  Weight: 102 kg

DRUGS (12)
  1. AMANTADINE. [Concomitant]
     Active Substance: AMANTADINE HYDROCHLORIDE
     Indication: PARKINSON^S DISEASE
     Dosage: 100 MG, UNK
     Route: 065
  2. CARBIDOPA/LEVODOPA [Concomitant]
     Active Substance: CARBIDOPA\LEVODOPA
     Indication: PARKINSON^S DISEASE
     Dosage: 50/200 MG, UNK
     Route: 065
  3. VITAMIN C [Concomitant]
     Active Substance: ASCORBIC ACID
     Indication: SUPPLEMENTATION THERAPY
     Dosage: 500 MG, UNK
     Route: 065
  4. RYTARY [Suspect]
     Active Substance: CARBIDOPA\LEVODOPA
     Indication: PARKINSON^S DISEASE
     Dosage: 36.25/145 MG, 3 CAPSULES 3 TIMES DAILY
     Route: 048
     Dates: start: 201609
  5. SCHIFF MOVE FREE [Concomitant]
     Active Substance: CHONDROITIN SULFATE A\GLUCOSAMINE
     Indication: SUPPLEMENTATION THERAPY
     Dosage: UNK
     Route: 065
  6. COQ10 [Concomitant]
     Active Substance: UBIDECARENONE
     Indication: SUPPLEMENTATION THERAPY
     Dosage: 300 MG, UNK
     Route: 065
  7. VITAMIN E [Concomitant]
     Active Substance: .ALPHA.-TOCOPHEROL
     Indication: SUPPLEMENTATION THERAPY
     Dosage: 400 IU, UNK
     Route: 065
  8. AMIODARONE [Concomitant]
     Active Substance: AMIODARONE
     Indication: COMPLICATION ASSOCIATED WITH DEVICE
     Dosage: 100 MG, UNK
     Route: 065
  9. MIRAPEX [Concomitant]
     Active Substance: PRAMIPEXOLE DIHYDROCHLORIDE
     Indication: PARKINSON^S DISEASE
     Dosage: 0.5 MG, UNK
     Route: 065
  10. LASIX [Concomitant]
     Active Substance: FUROSEMIDE
     Indication: PERIPHERAL SWELLING
     Dosage: 40 MG, UNK
     Route: 065
  11. CENTRUM SILVER [Concomitant]
     Active Substance: MINERALS\VITAMINS
     Indication: SUPPLEMENTATION THERAPY
     Dosage: UNK
     Route: 065
  12. MUCINEX [Concomitant]
     Active Substance: GUAIFENESIN
     Indication: SECRETION DISCHARGE
     Dosage: 600 MG, UNK
     Route: 065

REACTIONS (3)
  - Stress fracture [Recovered/Resolved]
  - Fall [Recovered/Resolved]
  - Fractured coccyx [Recovered/Resolved]

NARRATIVE: CASE EVENT DATE: 20170131
